FAERS Safety Report 6984512-2 (Version None)
Quarter: 2010Q3

REPORT INFORMATION
  Report Type: 
  Country: None (occurrence: None)
  Receive Date: 20100915
  Receipt Date: 20100907
  Transmission Date: 20110219
  Serious: Yes (Other)
  Sender: FDA-Public Use
  Company Number: US-ASTRAZENECA-2010SE41979

PATIENT
  Age: 48 Year
  Sex: Female
  Weight: 49 kg

DRUGS (10)
  1. CRESTOR [Suspect]
     Route: 048
  2. CRESTOR [Suspect]
     Route: 048
  3. KEPPRA [Concomitant]
     Indication: CONVULSION
  4. DEPAKOTE [Concomitant]
     Indication: CONVULSION
  5. TEMAZEPAM [Concomitant]
     Indication: INSOMNIA
  6. LISINOPRIL [Concomitant]
     Indication: HYPERTENSION
  7. ASPIRIN [Concomitant]
     Indication: CARDIAC DISORDER
  8. XANAX [Concomitant]
  9. ZOLOFT [Concomitant]
  10. ZANTAC [Concomitant]

REACTIONS (2)
  - BLOOD CHOLESTEROL DECREASED [None]
  - CEREBROVASCULAR ACCIDENT [None]
